FAERS Safety Report 17721556 (Version 1)
Quarter: 2020Q2

REPORT INFORMATION
  Report Type: Spontaneous
  Country: CA (occurrence: CA)
  Receive Date: 20200429
  Receipt Date: 20200429
  Transmission Date: 20200714
  Serious: Yes (Other)
  Sender: FDA-Public Use
  Company Number: CA-ROCHE-2589838

PATIENT
  Age: 43 Year
  Sex: Female

DRUGS (9)
  1. RABEPRAZOLE SODIUM. [Concomitant]
     Active Substance: RABEPRAZOLE SODIUM
     Route: 065
  2. HUMIRA [Suspect]
     Active Substance: ADALIMUMAB
     Indication: RHEUMATOID ARTHRITIS
     Route: 058
  3. HYDROXYCHLOROQUINE SULFATE. [Suspect]
     Active Substance: HYDROXYCHLOROQUINE SULFATE
     Indication: RHEUMATOID ARTHRITIS
     Route: 065
  4. APO-LEFLUNOMIDE [Suspect]
     Active Substance: LEFLUNOMIDE
     Indication: RHEUMATOID ARTHRITIS
     Route: 065
  5. ENBREL [Suspect]
     Active Substance: ETANERCEPT
     Indication: RHEUMATOID ARTHRITIS
     Route: 065
  6. ACTEMRA [Suspect]
     Active Substance: TOCILIZUMAB
     Indication: RHEUMATOID ARTHRITIS
     Route: 065
  7. TRAMADOL HYDROCHLORIDE. [Concomitant]
     Active Substance: TRAMADOL HYDROCHLORIDE
     Route: 048
  8. METHOTREXATE. [Suspect]
     Active Substance: METHOTREXATE
     Indication: RHEUMATOID ARTHRITIS
     Route: 065
  9. XELJANZ [Concomitant]
     Active Substance: TOFACITINIB CITRATE
     Indication: RHEUMATOID ARTHRITIS
     Route: 065

REACTIONS (18)
  - Drug ineffective [Not Recovered/Not Resolved]
  - Joint injury [Not Recovered/Not Resolved]
  - Joint swelling [Not Recovered/Not Resolved]
  - Musculoskeletal stiffness [Not Recovered/Not Resolved]
  - Groin pain [Not Recovered/Not Resolved]
  - Swelling [Not Recovered/Not Resolved]
  - Joint range of motion decreased [Not Recovered/Not Resolved]
  - Rheumatoid arthritis [Not Recovered/Not Resolved]
  - Retinal toxicity [Not Recovered/Not Resolved]
  - Peripheral swelling [Not Recovered/Not Resolved]
  - Sleep disorder [Not Recovered/Not Resolved]
  - Abdominal tenderness [Not Recovered/Not Resolved]
  - Arthralgia [Not Recovered/Not Resolved]
  - Pain [Not Recovered/Not Resolved]
  - Adverse drug reaction [Not Recovered/Not Resolved]
  - Arthropathy [Not Recovered/Not Resolved]
  - Pain in extremity [Not Recovered/Not Resolved]
  - Fatigue [Not Recovered/Not Resolved]
